FAERS Safety Report 6135291-2 (Version None)
Quarter: 2009Q1

REPORT INFORMATION
  Report Type: 
  Country: None (occurrence: None)
  Receive Date: 20090327
  Receipt Date: 20090319
  Transmission Date: 20090719
  Serious: Yes (Life-Threatening, Other)
  Sender: FDA-Public Use
  Company Number: DE-ELI_LILLY_AND_COMPANY-DE200902004741

PATIENT
  Sex: Female
  Weight: 92.3 kg

DRUGS (6)
  1. BYETTA [Suspect]
     Indication: TYPE 2 DIABETES MELLITUS
     Dosage: 5 UG, ONCE IN THE EVENING OF 16-FEB-2009 AND THE ANOTHER ON THE MORNING OF 17-FEB-2009
     Route: 058
     Dates: start: 20090216, end: 20090217
  2. METFORMIN [Concomitant]
     Dosage: 1000 MG, 2/D
     Route: 065
  3. LANTUS [Concomitant]
     Dosage: UNK, UNKNOWN
     Route: 065
  4. AMARYL [Concomitant]
     Dosage: UNK, UNKNOWN
     Route: 065
  5. HYDROCHLOROTHIAZIDE [Concomitant]
     Dosage: 25 MG, UNKNOWN
     Route: 065
  6. TRIAMTEREN [Concomitant]
     Indication: OEDEMA PERIPHERAL
     Dosage: UNK, UNKNOWN
     Route: 065

REACTIONS (7)
  - BUNDLE BRANCH BLOCK LEFT [None]
  - BURNING SENSATION [None]
  - DIABETIC NEUROPATHY [None]
  - HYPOKALAEMIA [None]
  - PARAESTHESIA [None]
  - SUPRAVENTRICULAR EXTRASYSTOLES [None]
  - SYNCOPE [None]
